FAERS Safety Report 8766169 (Version 1)
Quarter: 2012Q4

REPORT INFORMATION
  Report Type: 
  Country: GB (occurrence: GB)
  Receive Date: 20120904
  Receipt Date: 20120904
  Transmission Date: 20130627
  Serious: Yes (Disabling)
  Sender: FDA-Public Use
  Company Number: GB-WATSON-2012-15264

PATIENT
  Sex: Male

DRUGS (4)
  1. SIMVASTATIN (UNKNOWN) [Suspect]
     Indication: CORONARY ARTERY DISEASE
     Dosage: 40 mg
     Route: 048
     Dates: start: 20120709, end: 20120806
  2. ISOSORBIDE MONONITRATE [Concomitant]
     Indication: CORONARY ARTERY DISEASE
     Dosage: 10 mg, bid
     Route: 048
     Dates: start: 20120611
  3. BISOPROLOL [Concomitant]
     Indication: CORONARY ARTERY DISEASE
     Dosage: 2.5 mg, daily
     Route: 048
     Dates: start: 20120611
  4. CLOPIDOGREL [Concomitant]
     Indication: PRODUCT USED FOR UNKNOWN INDICATION
     Dosage: 75 mg
     Route: 048
     Dates: start: 20120611

REACTIONS (1)
  - Amnesia [Not Recovered/Not Resolved]
